FAERS Safety Report 6794531-7 (Version None)
Quarter: 2010Q2

REPORT INFORMATION
  Report Type: 
  Country: None (occurrence: None)
  Receive Date: 20100625
  Receipt Date: 20100122
  Transmission Date: 20101027
  Serious: No
  Sender: FDA-Public Use
  Company Number: A0841019A

PATIENT
  Sex: Male

DRUGS (2)
  1. VENTOLIN [Suspect]
     Indication: ASTHMA
     Dosage: 1PUFF TWICE PER DAY
     Route: 055
  2. ANTIBIOTIC [Concomitant]

REACTIONS (4)
  - DIARRHOEA [None]
  - NERVOUSNESS [None]
  - TREMOR [None]
  - VOMITING [None]
